FAERS Safety Report 9850207 (Version 1)
Quarter: 2013Q4

REPORT INFORMATION
  Report Type: Spontaneous
  Country: US (occurrence: None)
  Receive Date: 20131226
  Receipt Date: 20131226
  Transmission Date: 20140711
  Serious: Yes (Other)
  Sender: FDA-Public Use
  Company Number: PHEH2012US020795

PATIENT
  Age: 49 Year
  Sex: Female

DRUGS (4)
  1. DIOVAN (VALSARTAN) [Suspect]
     Indication: HYPERTENSION
     Route: 048
  2. CYMBALTA (DULOXETINE HYDROCHLORIDE) [Concomitant]
  3. LYRICA (PREGABALIN) [Concomitant]
  4. METFORMIN (METFORMIN) [Concomitant]

REACTIONS (6)
  - Blood pressure increased [None]
  - Vein disorder [None]
  - Chest discomfort [None]
  - Pain in extremity [None]
  - Back pain [None]
  - Headache [None]
